FAERS Safety Report 4937223-9 (Version None)
Quarter: 2006Q1

REPORT INFORMATION
  Report Type: 
  Country: None (occurrence: None)
  Receive Date: 20060309
  Receipt Date: 20060302
  Transmission Date: 20060701
  Serious: Yes (Hospitalization)
  Sender: FDA-Public Use
  Company Number: US-KINGPHARMUSA00001-K200600283

PATIENT
  Age: 83 Year
  Sex: Female

DRUGS (6)
  1. ALTACE [Suspect]
     Indication: HYPERTENSION
     Dosage: 2.5 MG, QD
     Route: 048
     Dates: end: 20060121
  2. ATENOLOL [Concomitant]
     Indication: HYPERTENSION
     Dosage: 25 MG, UNK
     Route: 048
  3. RISEDRONATE [Concomitant]
     Indication: OSTEOPOROSIS
     Dosage: 35 MG, QW
     Route: 048
  4. ADCAL-D3 [Concomitant]
     Indication: OSTEOPOROSIS
     Dosage: 2 U, UNK
     Route: 048
  5. LANSOPRAZOLE [Concomitant]
     Indication: DRUG USE FOR UNKNOWN INDICATION
     Dosage: 30 MG, UNK
     Route: 048
  6. FORCEVAL [Concomitant]
     Indication: DRUG USE FOR UNKNOWN INDICATION
     Dosage: 1 U, UNK
     Route: 048

REACTIONS (5)
  - ASTHENIA [None]
  - BACK PAIN [None]
  - MULTIPLE MYELOMA [None]
  - OSTEOPOROSIS [None]
  - RENAL FAILURE ACUTE [None]
